FAERS Safety Report 25107017 (Version 2)
Quarter: 2025Q4

REPORT INFORMATION
  Report Type: Report from Study
  Country: EU (occurrence: None)
  Receive Date: 20250321
  Receipt Date: 20251217
  Transmission Date: 20260118
  Serious: Yes (Hospitalization, Other)
  Sender: UCB
  Company Number: EU-UCBSA-2025016393

PATIENT

DRUGS (1)
  1. CERTOLIZUMAB PEGOL [Suspect]
     Active Substance: CERTOLIZUMAB PEGOL
     Indication: Axial spondyloarthritis
     Dosage: 200 MILLIGRAM, EV 2 WEEKS(QOW)

REACTIONS (1)
  - Peritonsillar abscess [Not Recovered/Not Resolved]
